FAERS Safety Report 16744256 (Version 3)
Quarter: 2020Q3

REPORT INFORMATION
  Report Type: Report from Study
  Country: BR (occurrence: BR)
  Receive Date: 20190827
  Receipt Date: 20200805
  Transmission Date: 20201102
  Serious: Yes (Life-Threatening, Hospitalization, Disabling, Other)
  Sender: FDA-Public Use
  Company Number: PHHY2015BR123643

PATIENT
  Age: 85 Year
  Sex: Female
  Weight: 77 kg

DRUGS (22)
  1. SANDOSTATIN LAR DEPOT [Suspect]
     Active Substance: OCTREOTIDE ACETATE
     Dosage: UNK
     Route: 030
  2. NOVALGINA [Suspect]
     Active Substance: METAMIZOLE SODIUM
     Indication: PAIN
     Dosage: UNK
     Route: 065
  3. OMEPRAZOLE. [Concomitant]
     Active Substance: OMEPRAZOLE
     Indication: PRODUCT USED FOR UNKNOWN INDICATION
     Dosage: UNK
     Route: 065
  4. CALCIUM [Concomitant]
     Active Substance: CALCIUM
     Indication: PRODUCT USED FOR UNKNOWN INDICATION
     Route: 065
  5. COMBIRON [Concomitant]
     Active Substance: ASCORBIC ACID\FERROUS SULFATE\FOLIC ACID\PYRIDOXINE HYDROCHLORIDE\RIBOFLAVIN\THIAMINE MONONITRATE
     Indication: PRODUCT USED FOR UNKNOWN INDICATION
     Dosage: UNK
     Route: 065
  6. SOMALGIN [Concomitant]
     Active Substance: ASPIRIN\DIHYDROXYALUMINUM AMINOACETATE ANHYDROUS\MAGNESIUM CARBONATE
     Indication: PRODUCT USED FOR UNKNOWN INDICATION
     Dosage: 20 MG, QHS
     Route: 065
  7. SANDOSTATIN LAR DEPOT [Suspect]
     Active Substance: OCTREOTIDE ACETATE
     Dosage: UNK
     Route: 065
     Dates: end: 20200310
  8. DOSTINEX [Concomitant]
     Active Substance: CABERGOLINE
     Indication: ACROMEGALY
     Dosage: MONDAY TO SATURDAY
     Route: 065
  9. SANDOSTATIN LAR DEPOT [Suspect]
     Active Substance: OCTREOTIDE ACETATE
     Dosage: 30 MG, QMO (EVERY 28 DAYS)
     Route: 030
  10. ATENOLOL. [Concomitant]
     Active Substance: ATENOLOL
     Indication: PRODUCT USED FOR UNKNOWN INDICATION
     Dosage: 50 MG, QD
     Route: 065
  11. CABERGOLINA [Concomitant]
     Active Substance: CABERGOLINE
     Indication: ACROMEGALY
     Dosage: 0.5 MG, UNK
     Route: 065
     Dates: start: 2007
  12. ATORVASTATIN CALCIUM. [Suspect]
     Active Substance: ATORVASTATIN CALCIUM
     Indication: PRODUCT USED FOR UNKNOWN INDICATION
     Dosage: 40 UNIT NOT REPORTED, QD (EVERY NIGHT)
     Route: 065
  13. CABERGOLINA [Concomitant]
     Active Substance: CABERGOLINE
     Dosage: UNK
     Route: 065
  14. ALENDRONATE [Concomitant]
     Active Substance: ALENDRONATE SODIUM
     Indication: PRODUCT USED FOR UNKNOWN INDICATION
     Dosage: UNK, SUNDAY
     Route: 065
  15. DIPYRONE [Suspect]
     Active Substance: DIPYRONE
     Indication: PAIN
     Dosage: UNK
     Route: 065
  16. ASPIRIN. [Concomitant]
     Active Substance: ASPIRIN
     Indication: PRODUCT USED FOR UNKNOWN INDICATION
     Dosage: UNK UNK, QD AT LUNCH
     Route: 065
  17. GLIFAGE [Concomitant]
     Active Substance: METFORMIN HYDROCHLORIDE
     Indication: GLUCOSE TOLERANCE IMPAIRED
     Dosage: UNK
     Route: 065
  18. SANDOSTATIN LAR DEPOT [Suspect]
     Active Substance: OCTREOTIDE ACETATE
     Indication: ACROMEGALY
     Dosage: 20 MG, UNK
     Route: 030
     Dates: start: 20070101
  19. SIMVASTATIN. [Concomitant]
     Active Substance: SIMVASTATIN
     Indication: PRODUCT USED FOR UNKNOWN INDICATION
     Dosage: 40 MG, QHS
     Route: 065
  20. CABERGOLINA [Concomitant]
     Active Substance: CABERGOLINE
     Dosage: 5 MG, QMO
     Route: 065
  21. CABERGOLINA [Concomitant]
     Active Substance: CABERGOLINE
     Dosage: 3 DF, QD
     Route: 065
  22. VIT D [Concomitant]
     Active Substance: VITAMIN D NOS
     Indication: PRODUCT USED FOR UNKNOWN INDICATION
     Route: 065

REACTIONS (52)
  - Gait disturbance [Not Recovered/Not Resolved]
  - Chest pain [Unknown]
  - Myalgia [Unknown]
  - Vitamin B12 deficiency [Unknown]
  - Ischaemia [Unknown]
  - Dysphonia [Unknown]
  - Headache [Unknown]
  - Chikungunya virus infection [Recovered/Resolved]
  - Malaise [Unknown]
  - Pain in extremity [Not Recovered/Not Resolved]
  - Urinary incontinence [Unknown]
  - Arthralgia [Not Recovered/Not Resolved]
  - Confusional state [Unknown]
  - Varicose vein [Unknown]
  - Nervousness [Unknown]
  - Tension [Unknown]
  - Muscle strain [Unknown]
  - Pollakiuria [Unknown]
  - Mass [Not Recovered/Not Resolved]
  - Fatigue [Unknown]
  - Pain [Not Recovered/Not Resolved]
  - Peripheral swelling [Not Recovered/Not Resolved]
  - Blood pressure increased [Not Recovered/Not Resolved]
  - Blindness [Unknown]
  - Memory impairment [Not Recovered/Not Resolved]
  - Weight decreased [Unknown]
  - Cough [Unknown]
  - Sneezing [Unknown]
  - Arthralgia [Unknown]
  - Pituitary enlargement [Unknown]
  - Back pain [Unknown]
  - Erythema [Unknown]
  - Eating disorder [Unknown]
  - Urinary tract infection [Recovered/Resolved]
  - Swelling [Unknown]
  - Influenza [Unknown]
  - Ear pain [Unknown]
  - Irritability [Unknown]
  - Speech disorder [Recovered/Resolved]
  - Anxiety [Recovering/Resolving]
  - Fear [Unknown]
  - Weight increased [Unknown]
  - Visual impairment [Unknown]
  - Feeling abnormal [Unknown]
  - Skin exfoliation [Unknown]
  - Neck pain [Unknown]
  - Diarrhoea [Recovered/Resolved]
  - Blood cholesterol abnormal [Not Recovered/Not Resolved]
  - Fall [Unknown]
  - Aphonia [Unknown]
  - Anaemia [Not Recovered/Not Resolved]
  - Pruritus [Not Recovered/Not Resolved]

NARRATIVE: CASE EVENT DATE: 2007
